FAERS Safety Report 8681070 (Version 2)
Quarter: 2013Q4

REPORT INFORMATION
  Report Type: Spontaneous
  Country: US (occurrence: US)
  Receive Date: 20120724
  Receipt Date: 20131031
  Transmission Date: 20140711
  Serious: Yes (Other)
  Sender: FDA-Public Use
  Company Number: US-009507513-1207USA005011

PATIENT
  Sex: Female

DRUGS (3)
  1. AFRIN ALL NIGHT NO DRIP [Suspect]
     Route: 045
  2. 4-WAY FAST ACTING NASAL SPRAY [Suspect]
     Indication: NASAL CONGESTION
     Dosage: 1 DF, QID
     Route: 048
     Dates: start: 1975
  3. BENADRYL COUGH (AMMONIUM CHLORIDE (+) DIPHENHYDRAMINE HYDROCHLORIDE (+ [Concomitant]

REACTIONS (8)
  - Blood pressure increased [Unknown]
  - Facial bones fracture [Unknown]
  - Chondropathy [Unknown]
  - Epistaxis [Unknown]
  - Nasal congestion [Unknown]
  - Rebound effect [Unknown]
  - Drug dependence [Unknown]
  - Drug administration error [Unknown]
